FAERS Safety Report 17855930 (Version 1)
Quarter: 2020Q2

REPORT INFORMATION
  Report Type: Spontaneous
  Country: SE (occurrence: SE)
  Receive Date: 20200603
  Receipt Date: 20200603
  Transmission Date: 20200714
  Serious: Yes (Hospitalization, Other)
  Sender: FDA-Public Use
  Company Number: SE-MICRO LABS LIMITED-ML2020-01719

PATIENT
  Age: 45 Year
  Sex: Male

DRUGS (3)
  1. MELANOTAN II [Suspect]
     Active Substance: INVESTIGATIONAL PRODUCT
     Dosage: 7 MG 3 WEEKS BEFORE THE ADMISSION TO THE HOSPITAL AND?27 MG OF MELANOTAN II WITHIN THE LAST 6 MONTHS
     Route: 058
  2. DICLOFENAC [Suspect]
     Active Substance: DICLOFENAC
     Indication: RENAL COLIC
     Dosage: SINGLE DOSE
  3. ESOMEPRAZOLE. [Suspect]
     Active Substance: ESOMEPRAZOLE MAGNESIUM
     Indication: GASTROOESOPHAGEAL REFLUX DISEASE

REACTIONS (1)
  - Renal infarct [Unknown]
